FAERS Safety Report 6412682-3 (Version None)
Quarter: 2009Q4

REPORT INFORMATION
  Report Type: 
  Country: None (occurrence: None)
  Receive Date: 20091023
  Receipt Date: 20091019
  Transmission Date: 20100525
  Serious: Yes (Hospitalization)
  Sender: FDA-Public Use
  Company Number: FR-AVENTIS-200912213FR

PATIENT
  Age: 34 Year
  Sex: Female

DRUGS (27)
  1. ORELOX [Suspect]
     Indication: DRUG USE FOR UNKNOWN INDICATION
     Route: 048
     Dates: start: 20081107, end: 20081117
  2. LASIX [Suspect]
     Indication: DRUG USE FOR UNKNOWN INDICATION
     Route: 048
     Dates: start: 20080613, end: 20081215
  3. SPECIAFOLDINE [Suspect]
     Indication: DRUG USE FOR UNKNOWN INDICATION
     Route: 048
     Dates: start: 20081008, end: 20081217
  4. KAYEXALATE [Suspect]
     Indication: DRUG USE FOR UNKNOWN INDICATION
     Dates: start: 20080613, end: 20080804
  5. KAYEXALATE [Suspect]
     Route: 064
     Dates: start: 20080805, end: 20081115
  6. IMUREL                             /00001501/ [Suspect]
     Route: 048
     Dates: start: 20080613, end: 20080821
  7. IMUREL                             /00001501/ [Suspect]
     Route: 048
     Dates: start: 20080822, end: 20080905
  8. NEORAL [Suspect]
     Route: 048
     Dates: end: 20081021
  9. NEORAL [Suspect]
     Route: 048
     Dates: start: 20081022, end: 20081105
  10. NEORAL [Suspect]
     Route: 048
     Dates: start: 20081105, end: 20081217
  11. RENAGEL                            /01459902/ [Suspect]
     Route: 048
     Dates: start: 20080828, end: 20081215
  12. MUCOMYST [Suspect]
     Route: 048
     Dates: start: 20081107, end: 20081110
  13. CORTICOSTEROIDS AND ANTIINFECTIVES IN COMB. [Suspect]
     Route: 045
     Dates: start: 20081031, end: 20081107
  14. RHINOFLUIMUCIL                     /00851901/ [Suspect]
     Route: 045
     Dates: start: 20081107, end: 20081110
  15. ATARAX [Suspect]
     Route: 048
     Dates: start: 20080818, end: 20081217
  16. ANTIBIOTREX [Suspect]
     Route: 061
     Dates: start: 20080829, end: 20080916
  17. RUBOZINC [Suspect]
     Route: 048
     Dates: start: 20080829, end: 20080916
  18. AMLODIPINE BESYLATE [Suspect]
     Route: 064
     Dates: start: 20080620, end: 20080916
  19. AMLODIPINE BESYLATE [Suspect]
     Route: 048
     Dates: start: 20080917, end: 20081215
  20. UN-ALFA [Suspect]
     Route: 048
     Dates: start: 20080704, end: 20081017
  21. NEXIUM [Suspect]
     Dates: start: 20080613, end: 20080821
  22. NEXIUM [Suspect]
     Route: 048
     Dates: start: 20080821, end: 20081217
  23. ARANESP [Suspect]
     Dates: start: 20080727, end: 20080928
  24. ARANESP [Suspect]
     Dates: start: 20080929, end: 20081217
  25. VENOFER [Suspect]
     Route: 042
     Dates: start: 20080613, end: 20081016
  26. VENOFER [Suspect]
     Route: 042
     Dates: start: 20081017, end: 20081214
  27. VENOFER [Suspect]
     Route: 042
     Dates: start: 20081215, end: 20081217

REACTIONS (2)
  - DRUG EXPOSURE DURING PREGNANCY [None]
  - STILLBIRTH [None]
